FAERS Safety Report 9348631 (Version 2)
Quarter: 2013Q3

REPORT INFORMATION
  Report Type: Spontaneous
  Country: QA (occurrence: QA)
  Receive Date: 20130614
  Receipt Date: 20130725
  Transmission Date: 20140515
  Serious: Yes (Other)
  Sender: FDA-Public Use
  Company Number: QA-ELI_LILLY_AND_COMPANY-QA201306001461

PATIENT
  Age: 70 Year
  Sex: 0

DRUGS (1)
  1. DULOXETINE HYDROCHLORIDE [Suspect]
     Dosage: 30 MG, UNKNOWN
     Route: 065

REACTIONS (1)
  - Transient ischaemic attack [Recovered/Resolved]
